FAERS Safety Report 17065167 (Version 3)
Quarter: 2020Q4

REPORT INFORMATION
  Report Type: Other
  Country: DE (occurrence: DE)
  Receive Date: 20191122
  Receipt Date: 20201109
  Transmission Date: 20210113
  Serious: Yes (Death)
  Sender: FDA-Public Use
  Company Number: DE-ROCHE-2471306

PATIENT
  Age: 63 Year
  Sex: Female
  Weight: 60 kg

DRUGS (10)
  1. RAMILICH [Suspect]
     Active Substance: RAMIPRIL
     Indication: PRODUCT USED FOR UNKNOWN INDICATION
     Route: 065
  2. MONTELUKAST [Suspect]
     Active Substance: MONTELUKAST SODIUM
     Indication: PRODUCT USED FOR UNKNOWN INDICATION
     Route: 065
  3. PANTOPRAZOLE [Concomitant]
     Active Substance: PANTOPRAZOLE
  4. ROACTEMRA [Suspect]
     Active Substance: TOCILIZUMAB
     Indication: GIANT CELL ARTERITIS
     Route: 058
     Dates: start: 20190919, end: 201910
  5. PARACETAMOL [Suspect]
     Active Substance: ACETAMINOPHEN
     Indication: PRODUCT USED FOR UNKNOWN INDICATION
     Route: 065
  6. MIRTAZAPINE. [Concomitant]
     Active Substance: MIRTAZAPINE
  7. NEUROTRAT S FORTE [Concomitant]
  8. NITRENDIPINE [Concomitant]
     Active Substance: NITRENDIPINE
  9. ROACTEMRA [Suspect]
     Active Substance: TOCILIZUMAB
     Indication: RHEUMATOID ARTHRITIS
     Route: 058
     Dates: start: 20190905
  10. DEKRISTOL [Concomitant]
     Active Substance: CHOLECALCIFEROL
     Dosage: 1000 UNIT NOT REQUIRED

REACTIONS (4)
  - Sepsis [Fatal]
  - Cholecystitis [Fatal]
  - Hepatic failure [Fatal]
  - Cholelithiasis [Fatal]

NARRATIVE: CASE EVENT DATE: 20191104
